FAERS Safety Report 5850950-4 (Version None)
Quarter: 2008Q3

REPORT INFORMATION
  Report Type: 
  Country: None (occurrence: None)
  Receive Date: 20080820
  Receipt Date: 20080815
  Transmission Date: 20090109
  Serious: Yes (Life-Threatening, Hospitalization)
  Sender: FDA-Public Use
  Company Number: PHHY2008CH18062

PATIENT
  Sex: Female

DRUGS (3)
  1. SANDIMMUNE [Suspect]
     Indication: MYOPATHY
     Dosage: 150 MG / DAY
     Dates: start: 20080618, end: 20080701
  2. METHOTREXATE [Suspect]
     Indication: MYOPATHY
     Dosage: 25 MG / WEEK
     Dates: start: 20080401, end: 20080701
  3. PREDNISON [Suspect]
     Indication: MYOPATHY
     Dosage: 25 MG / DAY
     Dates: start: 20080401

REACTIONS (5)
  - ENDOTRACHEAL INTUBATION [None]
  - GENERAL PHYSICAL HEALTH DETERIORATION [None]
  - HERPES SIMPLEX [None]
  - PNEUMOCYSTIS JIROVECI PNEUMONIA [None]
  - RESPIRATORY FAILURE [None]
